FAERS Safety Report 21867754 (Version 1)
Quarter: 2023Q1

REPORT INFORMATION
  Report Type: Spontaneous
  Country: US (occurrence: US)
  Receive Date: 20230116
  Receipt Date: 20230116
  Transmission Date: 20230417
  Serious: Yes (Other)
  Sender: FDA-Public Use
  Company Number: US-GSKCCFUS-Case-01600141_AE-90423

PATIENT

DRUGS (1)
  1. IMITREX [Suspect]
     Active Substance: SUMATRIPTAN SUCCINATE
     Indication: Product used for unknown indication
     Dosage: 50 MG

REACTIONS (3)
  - Breast cancer [Unknown]
  - Medication overuse headache [Unknown]
  - Migraine [Unknown]

NARRATIVE: CASE EVENT DATE: 20170101
